FAERS Safety Report 8970674 (Version 1)
Quarter: 2012Q4

REPORT INFORMATION
  Report Type: 
  Country: US (occurrence: US)
  Receive Date: 20121218
  Receipt Date: 20121218
  Transmission Date: 20130627
  Serious: No
  Sender: FDA-Public Use
  Company Number: US-GLAXOSMITHKLINE-A0991448A

PATIENT
  Age: 78 Year
  Sex: Female

DRUGS (5)
  1. NICORETTE NICOTINE POLACRILEX LOZENGE, 2MG [Suspect]
     Indication: EX-TOBACCO USER
  2. NICORETTE [Suspect]
     Indication: EX-TOBACCO USER
     Dates: start: 2011
  3. ADVAIR [Concomitant]
  4. NEBULIZER [Concomitant]
  5. UNSPECIFIED MEDICATION [Concomitant]

REACTIONS (4)
  - Alopecia [Not Recovered/Not Resolved]
  - Intentional drug misuse [Unknown]
  - Drug administration error [Unknown]
  - Nicotine dependence [Not Recovered/Not Resolved]
